FAERS Safety Report 16954483 (Version 1)
Quarter: 2019Q4

REPORT INFORMATION
  Report Type: Report from Study
  Country: US (occurrence: US)
  Receive Date: 20191023
  Receipt Date: 20191023
  Transmission Date: 20200122
  Serious: Yes (Hospitalization)
  Sender: FDA-Public Use
  Company Number: US-EISAI MEDICAL RESEARCH-EC-2019-062420

PATIENT
  Age: 71 Year
  Sex: Female
  Weight: 64 kg

DRUGS (1)
  1. LENVIMA [Suspect]
     Active Substance: LENVATINIB
     Indication: HEPATOCELLULAR CARCINOMA
     Route: 048
     Dates: start: 20190910, end: 201910

REACTIONS (3)
  - Ammonia increased [Unknown]
  - Confusional state [Unknown]
  - Abdominal pain [Unknown]

NARRATIVE: CASE EVENT DATE: 20190918
